FAERS Safety Report 12376372 (Version 1)
Quarter: 2016Q2

REPORT INFORMATION
  Report Type: Spontaneous
  Country: US (occurrence: None)
  Receive Date: 20160516
  Receipt Date: 20160516
  Transmission Date: 20160815
  Serious: No
  Sender: FDA-Public Use
  Company Number: None

PATIENT
  Age: 63 Year
  Sex: Female

DRUGS (19)
  1. PROTONIX (PANTOPRAZOLE SODIUM) [Concomitant]
  2. TRAZODONE HYDROCHLORIDE. [Concomitant]
     Active Substance: TRAZODONE HYDROCHLORIDE
  3. OSCAL 500/200 D3 (CALCIUM-VITAMIN D) [Concomitant]
  4. LIDODERM [Concomitant]
     Active Substance: LIDOCAINE
  5. VITAMIN D3 [Concomitant]
     Active Substance: CHOLECALCIFEROL
  6. TRIAMTERENE-HCTZ [Concomitant]
     Active Substance: HYDROCHLOROTHIAZIDE\TRIAMTERENE
  7. ATORVASTATIN CALCIUM. [Concomitant]
     Active Substance: ATORVASTATIN CALCIUM
  8. OINZESS (LINACLOTIDE) [Concomitant]
  9. REPATHA [Concomitant]
     Active Substance: EVOLOCUMAB
  10. EFFEXOR XR (VENLAFAXINE HCL) [Concomitant]
  11. MULTAQ (DRONEDARONE HCL) [Concomitant]
  12. DILTIAZEM HCL [Concomitant]
     Active Substance: DILTIAZEM HYDROCHLORIDE
  13. TRAMADOL HCL [Concomitant]
     Active Substance: TRAMADOL HYDROCHLORIDE
  14. ASPIRIN TBEC (ASPIRIN) [Concomitant]
  15. NADOLOL. [Concomitant]
     Active Substance: NADOLOL
  16. ZETIA [Concomitant]
     Active Substance: EZETIMIBE
  17. CVS PROBIOTIC [Concomitant]
  18. WARFARIN, 5MG TEVA [Suspect]
     Active Substance: WARFARIN SODIUM
     Indication: ATRIAL FIBRILLATION
     Dates: start: 20160401, end: 20160428
  19. NITROSTAT (NITROGLYCERIN) [Concomitant]

REACTIONS (3)
  - Treatment failure [None]
  - Product substitution issue [None]
  - International normalised ratio abnormal [None]

NARRATIVE: CASE EVENT DATE: 20160408
